FAERS Safety Report 7345037-8 (Version None)
Quarter: 2011Q1

REPORT INFORMATION
  Report Type: 
  Country: None (occurrence: None)
  Receive Date: 20110310
  Receipt Date: 20110303
  Transmission Date: 20110831
  Serious: Yes (Death, Hospitalization)
  Sender: FDA-Public Use
  Company Number: US-US-EMD SERONO, INC.-7025072

PATIENT
  Sex: Female

DRUGS (2)
  1. LORTAB [Concomitant]
  2. REBIF [Suspect]
     Indication: MULTIPLE SCLEROSIS
     Route: 058
     Dates: start: 20101022, end: 20101025

REACTIONS (5)
  - NAUSEA [None]
  - VOMITING [None]
  - PNEUMONIA [None]
  - BRONCHITIS [None]
  - DEHYDRATION [None]
